FAERS Safety Report 24099558 (Version 3)
Quarter: 2024Q4

REPORT INFORMATION
  Report Type: Spontaneous
  Country: ES (occurrence: ES)
  Receive Date: 20240716
  Receipt Date: 20241014
  Transmission Date: 20250115
  Serious: Yes (Other)
  Sender: SANDOZ
  Company Number: ES-PFIZER INC-PV202400083599

PATIENT
  Age: 8 Year
  Sex: Female

DRUGS (33)
  1. CYTARABINE [Suspect]
     Active Substance: CYTARABINE
     Indication: Leukaemia
     Dosage: 24 MG, ONCE
     Route: 037
     Dates: start: 20240605, end: 20240605
  2. DECADRON (DEXAMETHASONE SODIUM PHOSPHATE) [Suspect]
     Active Substance: DEXAMETHASONE SODIUM PHOSPHATE
     Indication: Product used for unknown indication
     Dosage: 9 MG, BID
     Route: 042
     Dates: start: 20240529, end: 20240616
  3. HYDROCORTISONE SODIUM PHOSPHATE [Suspect]
     Active Substance: HYDROCORTISONE SODIUM PHOSPHATE
     Indication: Leukaemia
     Dosage: 12 MG, ONCE
     Route: 037
     Dates: start: 20240605, end: 20240605
  4. METHOTREXATE [Suspect]
     Active Substance: METHOTREXATE
     Indication: Leukaemia
     Dosage: 12 MG, ONCE
     Route: 037
     Dates: start: 20240605, end: 20240605
  5. MITOXANTRONE HYDROCHLORIDE [Suspect]
     Active Substance: MITOXANTRONE HYDROCHLORIDE
     Indication: Leukaemia
     Dosage: 9 MG, QD
     Route: 042
     Dates: start: 20240529, end: 20240530
  6. PEGASPARGASE [Suspect]
     Active Substance: PEGASPARGASE
     Indication: Leukaemia
     Dosage: 900 IU, TWICE
     Route: 037
     Dates: start: 20240531, end: 20240614
  7. VINCRISTINE SULFATE [Suspect]
     Active Substance: VINCRISTINE SULFATE
     Indication: Leukaemia
     Dosage: 1.3 MG, EVERY WEEK
     Route: 042
     Dates: start: 20240531
  8. AMIKACIN [Concomitant]
     Active Substance: AMIKACIN
     Indication: Haemorrhage prophylaxis
     Dosage: UNK
     Route: 065
     Dates: start: 20240616
  9. AMLODIPINE [Concomitant]
     Active Substance: AMLODIPINE BESYLATE
     Indication: Pain
     Dosage: UNK
     Route: 048
     Dates: start: 20240527, end: 20240625
  10. AMPHOTERICIN B [Concomitant]
     Active Substance: AMPHOTERICIN B
     Indication: Fungaemia
     Dosage: UNK
     Route: 042
     Dates: start: 20240618, end: 20240621
  11. CHOLECALCIFEROL [Concomitant]
     Active Substance: CHOLECALCIFEROL
     Indication: Vitamin supplementation
     Dosage: UNK
     Route: 048
     Dates: start: 20240613
  12. DAPTOMYCIN [Concomitant]
     Active Substance: DAPTOMYCIN
     Indication: Bacteraemia
     Dosage: UNK
     Route: 048
     Dates: start: 20240620, end: 20240621
  13. DEFIBROTIDE [Concomitant]
     Active Substance: DEFIBROTIDE (BOVINE)
     Indication: Prophylaxis
     Dosage: 125 MG, QID
     Route: 042
     Dates: start: 20240621
  14. DEXCHLORPHENIRAMINE [Concomitant]
     Active Substance: DEXCHLORPHENIRAMINE
     Indication: Leukaemia
     Dosage: UNK
     Route: 065
     Dates: start: 20240617
  15. FUROSEMIDE [Concomitant]
     Active Substance: FUROSEMIDE
     Indication: Prophylaxis of nausea and vomiting
     Dosage: 1.3 MG
     Route: 065
     Dates: start: 20240514
  16. ALBUMIN HUMAN [Concomitant]
     Active Substance: ALBUMIN HUMAN
     Indication: Product used for unknown indication
     Dosage: UNK
     Route: 042
     Dates: start: 20240619, end: 20240626
  17. HYDROCORTISONE [Concomitant]
     Active Substance: HYDROCORTISONE
     Indication: Hypocalcaemia
     Dosage: UNK
     Route: 042
     Dates: start: 20240606, end: 20240626
  18. MAGNESIUM SULFATE [Concomitant]
     Active Substance: MAGNESIUM SULFATE
     Indication: Hypomagnesaemia
     Dosage: UNK
     Route: 042
     Dates: start: 20240614, end: 20240619
  19. MEROPENEM [Concomitant]
     Active Substance: MEROPENEM
     Indication: Infection prophylaxis
     Dosage: UNK
     Route: 042
     Dates: start: 20240611, end: 20240616
  20. METAMIZOLE [Concomitant]
     Active Substance: METAMIZOLE
     Indication: Pain
     Dosage: UNK
     Route: 042
     Dates: start: 20240609
  21. MICAFUNGIN [Concomitant]
     Active Substance: MICAFUNGIN SODIUM
     Indication: Leukaemia
     Dosage: UNK
     Route: 042
     Dates: start: 20240601, end: 20240625
  22. MORPHINE [Concomitant]
     Active Substance: MORPHINE
     Indication: Infection prophylaxis
     Dosage: 12 MG, QD
     Route: 037
  23. OMEPRAZOLE [Concomitant]
     Active Substance: OMEPRAZOLE
     Indication: Gastritis prophylaxis
     Dosage: UNK
     Route: 042
     Dates: start: 20240613
  24. ONDANSETRON [Concomitant]
     Active Substance: ONDANSETRON
     Indication: Infection prophylaxis
     Dosage: UNK
     Route: 065
     Dates: start: 20240520
  25. ACETAMINOPHEN [Concomitant]
     Active Substance: ACETAMINOPHEN
     Indication: Antifungal prophylaxis
     Dosage: UNK
     Route: 065
     Dates: start: 20240520
  26. PIPERACILLIN AND TAZOBACTAM [Concomitant]
     Active Substance: PIPERACILLIN SODIUM\TAZOBACTAM SODIUM
     Indication: Bacteraemia
     Dosage: UNK
     Route: 042
     Dates: start: 20240616, end: 20240621
  27. ALBUTEROL [Concomitant]
     Active Substance: ALBUTEROL
     Indication: Premedication
     Dosage: UNK
     Route: 045
     Dates: start: 20240528
  28. SCOPOLAMINE [Concomitant]
     Active Substance: SCOPOLAMINE
     Indication: Bacteraemia
     Dosage: UNK
     Route: 065
     Dates: start: 20240619, end: 20240625
  29. SPIRONOLACTONE [Concomitant]
     Active Substance: SPIRONOLACTONE
     Indication: Hypertension
     Dosage: UNK
     Route: 048
     Dates: start: 20240621, end: 20240624
  30. SULFAMETHOXAZOLE\TRIMETHOPRIM [Concomitant]
     Active Substance: SULFAMETHOXAZOLE\TRIMETHOPRIM
     Indication: Infection prophylaxis
     Route: 065
  31. URSODIOL [Concomitant]
     Active Substance: URSODIOL
     Indication: Prophylaxis
     Dosage: 200 MG, TID
     Route: 048
     Dates: start: 20240621
  32. VANCOMYCIN [Concomitant]
     Active Substance: VANCOMYCIN
     Indication: Hypokalaemia
     Dosage: UNK
     Route: 042
     Dates: start: 20240614
  33. VITAMIN K [Concomitant]
     Active Substance: PHYTONADIONE
     Indication: Fungaemia
     Dosage: UNK
     Route: 042
     Dates: start: 20240619

REACTIONS (1)
  - Venoocclusive liver disease [Recovered/Resolved]

NARRATIVE: CASE EVENT DATE: 20240625
